FAERS Safety Report 23137912 (Version 1)
Quarter: 2023Q4

REPORT INFORMATION
  Report Type: Report from Study
  Country: CA (occurrence: CA)
  Receive Date: 20231102
  Receipt Date: 20231102
  Transmission Date: 20240110
  Serious: Yes (Other)
  Sender: FDA-Public Use
  Company Number: CA-002147023-NVSC2023CA232403

PATIENT
  Age: 55 Year
  Sex: Male

DRUGS (2)
  1. GLEEVEC [Suspect]
     Active Substance: IMATINIB MESYLATE
     Indication: Chronic myeloid leukaemia
     Dosage: 400 MG, QD
     Route: 048
     Dates: start: 20221001
  2. GLEEVEC [Suspect]
     Active Substance: IMATINIB MESYLATE
     Indication: Thrombocytopenia
     Dosage: 200 MG, QD
     Route: 048
     Dates: start: 202301

REACTIONS (6)
  - Renal cell carcinoma [Unknown]
  - Second primary malignancy [Unknown]
  - Haemorrhage [Recovered/Resolved]
  - Oncocytoma [Unknown]
  - Splenomegaly [Unknown]
  - Renal mass [Unknown]

NARRATIVE: CASE EVENT DATE: 20221221
